FAERS Safety Report 16480268 (Version 1)
Quarter: 2019Q2

REPORT INFORMATION
  Report Type: Spontaneous
  Country: IR (occurrence: IR)
  Receive Date: 20190626
  Receipt Date: 20190626
  Transmission Date: 20190711
  Serious: Yes (Other)
  Sender: FDA-Public Use
  Company Number: PHHY2019IR144789

PATIENT
  Age: 9 Year
  Sex: Female

DRUGS (4)
  1. ETOPOSIDE. [Suspect]
     Active Substance: ETOPOSIDE
     Indication: NEUROBLASTOMA
     Dosage: 100 MG/M2, FOR 2 HOURS ON DAYS 1-3
     Route: 042
  2. DOXORUBICIN [Suspect]
     Active Substance: DOXORUBICIN
     Indication: NEUROBLASTOMA
     Dosage: 30 MG/M2, 4 HOURS ON DAY 1 OF EACH COURSE
     Route: 042
  3. I-META-IODOBENZYLGUANIDINE (131I-MIBG) [Suspect]
     Active Substance: IOBENGUANE I-131
     Indication: NEUROBLASTOMA
     Dosage: UNK
     Route: 065
     Dates: start: 201612
  4. PANOBINOSTAT [Suspect]
     Active Substance: PANOBINOSTAT
     Indication: NEUROBLASTOMA
     Dosage: 10 MG, QW3 1, 3, 5, 8, 10, 12 FOR TWO WEEKS AND THEN ONE WEEK OFF
     Route: 048
     Dates: start: 201703

REACTIONS (4)
  - Bone marrow failure [Unknown]
  - Product use in unapproved indication [Unknown]
  - Febrile neutropenia [Recovered/Resolved]
  - Vomiting [Recovering/Resolving]
